FAERS Safety Report 5449837-0 (Version None)
Quarter: 2007Q3

REPORT INFORMATION
  Report Type: 
  Country: None (occurrence: None)
  Receive Date: 20070828
  Receipt Date: 20070816
  Transmission Date: 20080115
  Serious: Yes (Disabling)
  Sender: FDA-Public Use
  Company Number: 200710550BBE

PATIENT
  Sex: 0

DRUGS (23)
  1. HELIXATE [Suspect]
     Indication: FACTOR VIII DEFICIENCY
     Dates: start: 20040528, end: 20040721
  2. HELIXATE [Suspect]
     Indication: FACTOR VIII DEFICIENCY
     Dates: start: 20040827, end: 20041112
  3. HELIXATE [Suspect]
     Indication: FACTOR VIII DEFICIENCY
     Dates: start: 20041216, end: 20050121
  4. HELIXATE [Suspect]
     Indication: FACTOR VIII DEFICIENCY
     Dates: start: 20050210, end: 20050323
  5. HELIXATE [Suspect]
     Indication: FACTOR VIII DEFICIENCY
     Dates: start: 20050404, end: 20050421
  6. HELIXATE [Suspect]
     Indication: FACTOR VIII DEFICIENCY
     Dates: start: 20050528, end: 20050616
  7. HELIXATE [Suspect]
     Indication: FACTOR VIII DEFICIENCY
     Dates: start: 20050802, end: 20051102
  8. HELIXATE [Suspect]
     Indication: FACTOR VIII DEFICIENCY
     Dates: start: 20040420
  9. HELIXATE [Suspect]
     Indication: FACTOR VIII DEFICIENCY
     Dates: start: 20050912
  10. HELIXATE [Suspect]
     Indication: FACTOR VIII DEFICIENCY
     Dates: start: 20051221
  11. HELIXATE [Suspect]
     Indication: FACTOR VIII DEFICIENCY
     Dates: start: 20060204
  12. HELIXATE [Suspect]
     Indication: FACTOR VIII DEFICIENCY
     Dates: start: 20060204
  13. HELIXATE [Suspect]
  14. HELIXATE [Suspect]
  15. HELIXATE [Suspect]
  16. HELIXATE [Suspect]
  17. HELIXATE [Suspect]
  18. HELIXATE [Suspect]
  19. HELIXATE [Suspect]
  20. HELIXATE [Suspect]
  21. HELIXATE [Suspect]
  22. HELIXATE [Suspect]
  23. HELIXATE [Suspect]

REACTIONS (1)
  - FACTOR VIII INHIBITION [None]
